FAERS Safety Report 9579426 (Version 1)
Quarter: 2013Q4

REPORT INFORMATION
  Report Type: Spontaneous
  Country: US (occurrence: US)
  Receive Date: 20131001
  Receipt Date: 20131001
  Transmission Date: 20140711
  Serious: No
  Sender: FDA-Public Use
  Company Number: US-AMGEN-USASP2013017743

PATIENT
  Age: 52 Year
  Sex: Female
  Weight: 131.7 kg

DRUGS (5)
  1. ENBREL [Suspect]
     Indication: PSORIATIC ARTHROPATHY
     Dosage: 25 MG, 2 TIMES/WK
  2. DIOVAN [Concomitant]
     Dosage: 160 MG, UNK
  3. SIMVASTATIN [Concomitant]
     Dosage: 40 MG, UNK
  4. BABY ASPIRIN [Concomitant]
     Dosage: 81 MG, UNK
  5. MULTIVITAMINS, PLAIN [Concomitant]
     Dosage: UNK

REACTIONS (8)
  - Rash [Unknown]
  - Eye colour change [Unknown]
  - Eye swelling [Unknown]
  - Sinus headache [Unknown]
  - Vomiting [Unknown]
  - Nausea [Unknown]
  - Discomfort [Unknown]
  - Pain [Unknown]
